FAERS Safety Report 9165476 (Version 1)
Quarter: 2013Q1

REPORT INFORMATION
  Report Type: Spontaneous
  Country: TR (occurrence: TR)
  Receive Date: 20130315
  Receipt Date: 20130315
  Transmission Date: 20140127
  Serious: Yes (Other)
  Sender: FDA-Public Use
  Company Number: TR-PFIZER INC-2012235778

PATIENT
  Age: 38 Year
  Sex: Female

DRUGS (6)
  1. EFEXOR XR [Suspect]
     Dosage: 150 MG, UNK
     Dates: start: 2012, end: 2012
  2. EFEXOR XR [Suspect]
     Dosage: 150 MG, UNK
     Dates: start: 201209, end: 2012
  3. EFEXOR XR [Suspect]
     Dosage: 300 MG, UNK
     Dates: start: 2012, end: 2013
  4. EFEXOR XR [Suspect]
     Dosage: 150 MG, DAILY
     Dates: start: 2013, end: 2013
  5. EFEXOR XR [Suspect]
     Dosage: 150 MG, ONCE IN 2 DAYS
     Dates: start: 2013, end: 2013
  6. EFEXOR XR [Suspect]
     Dosage: 150 MG, ONCE IN 3 DAYS
     Dates: start: 2013, end: 2013

REACTIONS (15)
  - Suicidal ideation [Not Recovered/Not Resolved]
  - Polymedication [Unknown]
  - Obsessive-compulsive disorder [Unknown]
  - Social avoidant behaviour [Unknown]
  - Feeling of despair [Unknown]
  - Restlessness [Not Recovered/Not Resolved]
  - Stress [Not Recovered/Not Resolved]
  - Constipation [Not Recovered/Not Resolved]
  - Hyperhidrosis [Not Recovered/Not Resolved]
  - Hot flush [Not Recovered/Not Resolved]
  - Nervousness [Not Recovered/Not Resolved]
  - Menstruation irregular [Not Recovered/Not Resolved]
  - Menorrhagia [Not Recovered/Not Resolved]
  - Discomfort [Unknown]
  - Drug ineffective [Not Recovered/Not Resolved]
